FAERS Safety Report 26037359 (Version 1)
Quarter: 2025Q4

REPORT INFORMATION
  Report Type: Spontaneous
  Country: US (occurrence: US)
  Receive Date: 20251112
  Receipt Date: 20251112
  Transmission Date: 20260117
  Serious: Yes (Other)
  Sender: PFIZER
  Company Number: US-PFIZER INC-202500219647

PATIENT

DRUGS (2)
  1. LORLATINIB [Suspect]
     Active Substance: LORLATINIB
     Dosage: UNK
  2. CAPMATINIB [Concomitant]
     Active Substance: CAPMATINIB
     Dosage: UNK

REACTIONS (1)
  - Malignant neoplasm progression [Unknown]
